FAERS Safety Report 14302833 (Version 2)
Quarter: 2018Q1

REPORT INFORMATION
  Report Type: Spontaneous
  Country: RU (occurrence: RU)
  Receive Date: 20171219
  Receipt Date: 20180112
  Transmission Date: 20180509
  Serious: Yes (Other)
  Sender: FDA-Public Use
  Company Number: RU-BAYER-2017-240570

PATIENT
  Age: 48 Year
  Sex: Female

DRUGS (1)
  1. CLARITINE 0.1 % [Suspect]
     Active Substance: LORATADINE

REACTIONS (1)
  - Asphyxia [Recovered/Resolved]
